FAERS Safety Report 17002471 (Version 4)
Quarter: 2020Q1

REPORT INFORMATION
  Report Type: Spontaneous
  Country: JP (occurrence: JP)
  Receive Date: 20191107
  Receipt Date: 20200111
  Transmission Date: 20200409
  Serious: Yes (Death, Life-Threatening, Hospitalization, Other)
  Sender: FDA-Public Use
  Company Number: JP-AMGEN-JPNSP2019184460

PATIENT
  Age: 82 Year
  Sex: Female

DRUGS (2)
  1. RHEUMATREX [Suspect]
     Active Substance: METHOTREXATE SODIUM
     Indication: PRODUCT USED FOR UNKNOWN INDICATION
     Dosage: 8 MILLIGRAM, QWK
     Route: 048
     Dates: start: 2017, end: 201910
  2. ENBREL [Suspect]
     Active Substance: ETANERCEPT
     Indication: PRODUCT USED FOR UNKNOWN INDICATION
     Dosage: 50 MG, WEEKLY
     Route: 058
     Dates: start: 2017, end: 201910

REACTIONS (13)
  - Subcutaneous abscess [Unknown]
  - Sepsis [Fatal]
  - Alanine aminotransferase increased [Unknown]
  - Infection [Fatal]
  - Pleural effusion [Fatal]
  - C-reactive protein increased [Unknown]
  - Aspartate aminotransferase increased [Unknown]
  - Fibrin D dimer increased [Unknown]
  - Serum ferritin increased [Unknown]
  - Occult blood positive [Unknown]
  - Septic shock [Fatal]
  - Extradural abscess [Fatal]
  - Brain natriuretic peptide increased [Unknown]

NARRATIVE: CASE EVENT DATE: 20191021
